FAERS Safety Report 8245257-4 (Version None)
Quarter: 2012Q1

REPORT INFORMATION
  Report Type: 
  Country: None (occurrence: None)
  Receive Date: 20120329
  Receipt Date: 20120315
  Transmission Date: 20120608
  Serious: Yes (Hospitalization)
  Sender: FDA-Public Use
  Company Number: DE-ROCHE-1049674

PATIENT
  Sex: Female
  Weight: 77 kg

DRUGS (2)
  1. XELODA [Suspect]
     Indication: BREAST CANCER METASTATIC
     Route: 048
     Dates: start: 20100703, end: 20100717
  2. DEXAMETHASONE [Suspect]
     Indication: VOMITING
     Route: 048
     Dates: start: 20100629

REACTIONS (4)
  - TOXICITY TO VARIOUS AGENTS [None]
  - GENERAL PHYSICAL HEALTH DETERIORATION [None]
  - MUCOSAL INFLAMMATION [None]
  - BONE MARROW FAILURE [None]
